FAERS Safety Report 5765954-X (Version None)
Quarter: 2008Q2

REPORT INFORMATION
  Report Type: 
  Country: None (occurrence: None)
  Receive Date: 20080611
  Receipt Date: 20071213
  Transmission Date: 20081010
  Serious: No
  Sender: FDA-Public Use
  Company Number: US-BRISTOL-MYERS SQUIBB COMPANY-14033765

PATIENT
  Age: 68 Year
  Sex: Female

DRUGS (3)
  1. CARBIDOPA + LEVODOPA [Suspect]
     Indication: TREMOR
     Route: 048
     Dates: start: 20041201, end: 20041201
  2. ENOXAPARIN SODIUM [Concomitant]
     Dates: start: 20041218
  3. ISOSORBIDE MONONITRATE [Concomitant]
     Dates: start: 20041218

REACTIONS (1)
  - NAUSEA [None]
